FAERS Safety Report 9733105 (Version 3)
Quarter: 2013Q4

REPORT INFORMATION
  Report Type: Spontaneous
  Country: US (occurrence: US)
  Receive Date: 20131205
  Receipt Date: 20131223
  Transmission Date: 20140711
  Serious: Yes (Life-Threatening, Hospitalization, Other)
  Sender: FDA-Public Use
  Company Number: CHPA2013US017542

PATIENT
  Age: 44 Year
  Sex: Male

DRUGS (12)
  1. PRIVATE LABEL [Suspect]
     Dosage: 21 MG, QD
     Route: 062
     Dates: start: 20121104
  2. CVS [Suspect]
     Indication: SMOKING CESSATION THERAPY
     Dosage: 21 MG, QD
     Route: 062
  3. CVS [Suspect]
     Dosage: 21 MG, QD
     Route: 062
  4. ACETYLSALICYLIC ACID [Suspect]
  5. NAPROXEN [Suspect]
  6. ADVIL//IBUPROFEN [Suspect]
  7. NALTREXONE [Concomitant]
  8. CHLORZOXAZONE [Concomitant]
  9. NIASPAN ER [Concomitant]
  10. FERROUS SULFATE [Concomitant]
  11. VIMOVO [Concomitant]
  12. LIDOCAINE [Concomitant]

REACTIONS (14)
  - Coma [Recovered/Resolved]
  - Renal failure [Recovered/Resolved]
  - General physical health deterioration [Recovered/Resolved]
  - Post-traumatic stress disorder [Not Recovered/Not Resolved]
  - Agoraphobia [Not Recovered/Not Resolved]
  - Fall [Unknown]
  - Polyneuropathy [Not Recovered/Not Resolved]
  - Memory impairment [Not Recovered/Not Resolved]
  - Gastric haemorrhage [Unknown]
  - Rectal haemorrhage [Unknown]
  - Abdominal pain upper [Unknown]
  - Constipation [Unknown]
  - Back pain [Not Recovered/Not Resolved]
  - Incorrect drug administration duration [Unknown]
